FAERS Safety Report 11814238 (Version 1)
Quarter: 2015Q4

REPORT INFORMATION
  Report Type: Spontaneous
  Country: US (occurrence: None)
  Receive Date: 20151208
  Receipt Date: 20151208
  Transmission Date: 20160305
  Serious: Yes (Other)
  Sender: FDA-Public Use
  Company Number: None

PATIENT
  Age: 37 Year
  Sex: Female
  Weight: 65.77 kg

DRUGS (11)
  1. FLOVENT DISKUS (INHALED FLUTICASONE PROPIONATE) [Concomitant]
  2. CURCUMIN [Concomitant]
     Active Substance: CURCUMIN
  3. MELATONIN [Concomitant]
     Active Substance: MELATONIN
  4. PARAGARD T 380A [Concomitant]
     Active Substance: COPPER
  5. PROAIR INHALER (ALBUTEROL) [Concomitant]
  6. VENLAFAXINE XR [Concomitant]
     Active Substance: VENLAFAXINE HYDROCHLORIDE
  7. OMEPRAZOLE. [Concomitant]
     Active Substance: OMEPRAZOLE
  8. LEVOFLOXACIN 500 MG [Suspect]
     Active Substance: LEVOFLOXACIN
     Indication: SINUSITIS
     Route: 048
     Dates: start: 20151110, end: 20151123
  9. VALERIAN [Concomitant]
     Active Substance: VALERIAN
  10. MULTIVITAMIN [Concomitant]
     Active Substance: VITAMINS
  11. CLONAZEPAM. [Concomitant]
     Active Substance: CLONAZEPAM

REACTIONS (6)
  - Emotional disorder [None]
  - Suicidal ideation [None]
  - Insomnia [None]
  - Nightmare [None]
  - Depression [None]
  - Irritability [None]

NARRATIVE: CASE EVENT DATE: 20151110
